FAERS Safety Report 20203581 (Version 1)
Quarter: 2021Q4

REPORT INFORMATION
  Report Type: Spontaneous
  Country: US (occurrence: US)
  Receive Date: 20211219
  Receipt Date: 20211219
  Transmission Date: 20220303
  Serious: Yes (Hospitalization)
  Sender: FDA-Public Use
  Company Number: US-JNJFOC-20211214119

PATIENT
  Age: 30 Year
  Sex: Female
  Weight: 70 kg

DRUGS (6)
  1. TYLENOL WITH CODEINE [Suspect]
     Active Substance: ACETAMINOPHEN\CODEINE PHOSPHATE
     Indication: Insomnia
     Route: 048
     Dates: end: 20011105
  2. TYLENOL PM [Suspect]
     Active Substance: ACETAMINOPHEN\DIPHENHYDRAMINE
     Indication: Insomnia
     Dosage: (ACETAMINOPHEN 500 MG / DIPHENHYDRAMINE HCL 25 MG)
     Route: 048
     Dates: end: 20011006
  3. WYGESIC [Suspect]
     Active Substance: ACETAMINOPHEN\PROPOXYPHENE HYDROCHLORIDE
     Indication: Insomnia
     Dosage: (DEXTROPROPOXYPHENE HYDROCHLORIDE/ ACETAMINOPHEN)
     Route: 048
     Dates: end: 20011006
  4. IBUPROFEN [Concomitant]
     Active Substance: IBUPROFEN
     Indication: Product used for unknown indication
     Dosage: 800 MG/DAY, 1 MONTH
     Route: 065
     Dates: end: 20011109
  5. PROZAC [Concomitant]
     Active Substance: FLUOXETINE HYDROCHLORIDE
     Indication: Product used for unknown indication
     Dosage: 20 MG/DAY, 11 MONTHS
     Route: 065
     Dates: end: 20011109
  6. ZITHROMAX [Concomitant]
     Active Substance: AZITHROMYCIN DIHYDRATE
     Indication: Product used for unknown indication
     Dosage: UNKNOWN DOSE, 7 DAYS
     Route: 065
     Dates: end: 20011109

REACTIONS (5)
  - Sinus bradycardia [Recovered/Resolved]
  - Product administration error [Recovered/Resolved]
  - Product use in unapproved indication [Recovered/Resolved]
  - Acute hepatic failure [Recovered/Resolved]
  - Accidental overdose [Recovered/Resolved]
